FAERS Safety Report 6740412-4 (Version None)
Quarter: 2010Q2

REPORT INFORMATION
  Report Type: 
  Country: None (occurrence: None)
  Receive Date: 20100521
  Receipt Date: 20100510
  Transmission Date: 20101027
  Serious: Yes (Other)
  Sender: FDA-Public Use
  Company Number: WAES 0904USA04272

PATIENT
  Age: 60 Year
  Sex: Male

DRUGS (4)
  1. ZOCOR [Suspect]
     Indication: ACUTE CORONARY SYNDROME
     Dosage: 40 MG/ DAILY
     Route: 048
     Dates: start: 20070411
  2. TAB PLACEBO (UNSPECIFIED) [Suspect]
     Indication: ACUTE CORONARY SYNDROME
     Dates: start: 20070411
  3. ALTACE HCT [Concomitant]
  4. ASPIRIN [Concomitant]

REACTIONS (3)
  - ACTINIC KERATOSIS [None]
  - BASAL CELL CARCINOMA [None]
  - DISEASE RECURRENCE [None]
